FAERS Safety Report 16651726 (Version 1)
Quarter: 2019Q3

REPORT INFORMATION
  Report Type: Spontaneous
  Country: DE (occurrence: DE)
  Receive Date: 20190731
  Receipt Date: 20190731
  Transmission Date: 20191004
  Serious: Yes (Other)
  Sender: FDA-Public Use
  Company Number: DE-PROVELL PHARMACEUTICALS-2071572

PATIENT
  Age: 72 Year
  Sex: Female

DRUGS (4)
  1. CITRIC ACID [Suspect]
     Active Substance: CITRIC ACID MONOHYDRATE
  2. EUTHYROX [Suspect]
     Active Substance: LEVOTHYROXINE SODIUM
     Indication: PRODUCT USED FOR UNKNOWN INDICATION
  3. DICLAC [Suspect]
     Active Substance: DICLOFENAC
  4. IBUPROFEN. [Concomitant]
     Active Substance: IBUPROFEN

REACTIONS (3)
  - Cataract [None]
  - Ileus [None]
  - Swelling face [None]

NARRATIVE: CASE EVENT DATE: 2017
